FAERS Safety Report 5930543-0 (Version None)
Quarter: 2008Q4

REPORT INFORMATION
  Report Type: 
  Country: None (occurrence: None)
  Receive Date: 20081026
  Receipt Date: 20081023
  Transmission Date: 20090506
  Serious: Yes (Hospitalization)
  Sender: FDA-Public Use
  Company Number: PHHO2002ES00797

PATIENT
  Sex: Female

DRUGS (3)
  1. SIMULECT [Suspect]
     Indication: LIVER TRANSPLANT
     Dosage: 20 MG, DAY 0
     Route: 042
     Dates: start: 20011025, end: 20011025
  2. SIMULECT [Suspect]
     Dosage: 20 MG, DAY 4
     Route: 042
     Dates: start: 20011029, end: 20011029
  3. NEORAL [Suspect]
     Indication: LIVER TRANSPLANT
     Dates: end: 20020122

REACTIONS (4)
  - HEPATIC ENZYME INCREASED [None]
  - HEPATITIS C [None]
  - JAUNDICE [None]
  - LIVER TRANSPLANT REJECTION [None]
